FAERS Safety Report 6401858-7 (Version None)
Quarter: 2009Q4

REPORT INFORMATION
  Report Type: 
  Country: None (occurrence: None)
  Receive Date: 20091015
  Receipt Date: 20091005
  Transmission Date: 20100525
  Serious: Yes (Life-Threatening, Hospitalization, Other)
  Sender: FDA-Public Use
  Company Number: AT-ELI_LILLY_AND_COMPANY-AT200910001111

PATIENT
  Age: 28 Year
  Sex: Female
  Weight: 82 kg

DRUGS (18)
  1. ZYPREXA [Suspect]
     Dosage: 25 MG, DAILY (1/D)
     Dates: start: 20060101, end: 20090709
  2. ZYPREXA [Suspect]
     Dosage: 20 MG, DAILY (1/D)
     Dates: start: 20090710, end: 20090710
  3. ZYPREXA [Suspect]
     Dosage: 30 MG, DAILY (1/D)
     Dates: start: 20090711, end: 20090730
  4. ZYPREXA [Suspect]
     Dosage: 40 MG, DAILY (1/D)
     Dates: start: 20090731, end: 20090802
  5. MUTAN [Concomitant]
     Dosage: 20 MG, DAILY (1/D)
     Dates: start: 20090716, end: 20090720
  6. MUTAN [Concomitant]
     Dosage: 10 MG, DAILY (1/D)
     Dates: start: 20090721, end: 20090726
  7. MUTAN [Concomitant]
     Dosage: 20 MG, DAILY (1/D)
     Dates: start: 20090727, end: 20090730
  8. TEMESTA [Concomitant]
     Dosage: 3.5 MG, DAILY (1/D)
     Dates: start: 20090710, end: 20090710
  9. TEMESTA [Concomitant]
     Dosage: 5 MG, DAILY (1/D)
     Dates: start: 20090711, end: 20090712
  10. TEMESTA [Concomitant]
     Dosage: 4.25 MG, DAILY (1/D)
     Dates: start: 20090713, end: 20090713
  11. TEMESTA [Concomitant]
     Dosage: 3 MG, DAILY (1/D)
     Dates: start: 20090714, end: 20090716
  12. TEMESTA [Concomitant]
     Dosage: 2.5 MG, DAILY (1/D)
     Dates: start: 20090717, end: 20090719
  13. TEMESTA [Concomitant]
     Dosage: 1 MG, DAILY (1/D)
     Dates: start: 20090720, end: 20090721
  14. TEMESTA [Concomitant]
     Dosage: 0.5 MG, UNK
     Dates: start: 20090722
  15. ABILIFY [Concomitant]
     Dosage: 5 MG, DAILY (1/D)
     Dates: start: 20090727, end: 20090730
  16. TRUXAL /00012101/ [Concomitant]
     Dosage: 11 ML, UNK
     Dates: start: 20090728, end: 20090728
  17. TRUXAL /00012101/ [Concomitant]
     Dosage: 7 ML, UNK
     Dates: start: 20090729, end: 20090730
  18. CISORDINOL /00876704/ [Concomitant]
     Dosage: 150 MG, DAILY (1/D)
     Dates: start: 20090728

REACTIONS (3)
  - LEUKOCYTOSIS [None]
  - NEUROLEPTIC MALIGNANT SYNDROME [None]
  - OVERDOSE [None]
